FAERS Safety Report 5853139-8 (Version None)
Quarter: 2008Q3

REPORT INFORMATION
  Report Type: 
  Country: None (occurrence: None)
  Receive Date: 20080821
  Receipt Date: 20080819
  Transmission Date: 20090109
  Serious: Yes (Other)
  Sender: FDA-Public Use
  Company Number: US-BOEHRINGER INGELHEIM GMBH, GERMANY-2008-BP-12263BP

PATIENT
  Age: 84 Year
  Sex: Male
  Weight: 84 kg

DRUGS (6)
  1. AGGRENOX [Suspect]
     Indication: CEREBROVASCULAR ACCIDENT
     Dates: start: 20060101, end: 20080804
  2. TIKOSYN [Concomitant]
     Route: 048
  3. DIOVAN [Concomitant]
     Route: 048
  4. LORTAB [Concomitant]
     Route: 048
  5. NORVASC [Concomitant]
     Route: 048
  6. IMDUR [Concomitant]

REACTIONS (1)
  - THROMBOCYTOPENIA [None]
